FAERS Safety Report 9151991 (Version 2)
Quarter: 2013Q2

REPORT INFORMATION
  Report Type: Spontaneous
  Country: BR (occurrence: BR)
  Receive Date: 20130308
  Receipt Date: 20130418
  Transmission Date: 20140414
  Serious: Yes (Death, Hospitalization)
  Sender: FDA-Public Use
  Company Number: BR-ELI_LILLY_AND_COMPANY-BR201303000177

PATIENT
  Sex: Female
  Weight: 19 kg

DRUGS (2)
  1. FORTEO [Suspect]
     Indication: OSTEOPOROSIS
     Dosage: UNK
     Dates: start: 201201, end: 201212
  2. CALCIUM [Concomitant]
     Dosage: UNK, UNKNOWN
     Route: 065

REACTIONS (9)
  - Respiratory failure [Fatal]
  - Gastric cancer [Fatal]
  - Tuberculosis gastrointestinal [Fatal]
  - Cardio-respiratory arrest [Fatal]
  - Pulmonary tuberculosis [Fatal]
  - Haemorrhage [Unknown]
  - Haematemesis [Unknown]
  - Diarrhoea haemorrhagic [Unknown]
  - Pyrexia [Unknown]
